FAERS Safety Report 23977065 (Version 1)
Quarter: 2024Q2

REPORT INFORMATION
  Report Type: Spontaneous
  Country: US (occurrence: US)
  Receive Date: 20240614
  Receipt Date: 20240614
  Transmission Date: 20240715
  Serious: No
  Sender: FDA-Public Use
  Company Number: US-HALEON-2181612

PATIENT
  Age: 31 Year
  Sex: Female

DRUGS (1)
  1. SENSODYNE PRONAMEL MULTI ACTION [Suspect]
     Active Substance: POTASSIUM NITRATE\SODIUM FLUORIDE
     Indication: Dental disorder prophylaxis
     Dosage: EXPDATE:202701
     Dates: start: 20240522, end: 20240609

REACTIONS (3)
  - Oral mucosal exfoliation [Unknown]
  - Gingival discomfort [Unknown]
  - Gingival bleeding [Unknown]

NARRATIVE: CASE EVENT DATE: 20240522
